FAERS Safety Report 6894994-2 (Version None)
Quarter: 2010Q3

REPORT INFORMATION
  Report Type: 
  Country: None (occurrence: None)
  Receive Date: 20100802
  Receipt Date: 20100722
  Transmission Date: 20110219
  Serious: Yes (Hospitalization, Other)
  Sender: FDA-Public Use
  Company Number: US-SANOFI-AVENTIS-2010SA032473

PATIENT
  Age: 62 Year
  Sex: Male
  Weight: 117.9 kg

DRUGS (8)
  1. LANTUS [Suspect]
     Indication: TYPE 2 DIABETES MELLITUS
     Dosage: DOSE:20 UNIT(S)
     Route: 058
     Dates: end: 20080101
  2. LANTUS [Suspect]
     Route: 058
     Dates: start: 20100101
  3. LANTUS [Suspect]
     Dosage: 40 UNITS IN AM AND 70 UNITS PM
     Route: 058
     Dates: start: 20040101, end: 20100701
  4. INSULIN DETEMIR [Concomitant]
     Dates: start: 20100601, end: 20100601
  5. HYDRALAZINE HCL [Concomitant]
     Dates: start: 20060101
  6. CARDURA /IRE/ [Concomitant]
     Dates: start: 20060101
  7. PROCARDIA [Concomitant]
     Dates: start: 20060101
  8. NEURONTIN [Concomitant]
     Dates: start: 20090101

REACTIONS (3)
  - HYPOGLYCAEMIC COMA [None]
  - PNEUMONIA [None]
  - RENAL CANCER [None]
